FAERS Safety Report 26088778 (Version 1)
Quarter: 2025Q4

REPORT INFORMATION
  Report Type: Spontaneous
  Country: AR (occurrence: AR)
  Receive Date: 20251125
  Receipt Date: 20251125
  Transmission Date: 20260119
  Serious: Yes (Other)
  Sender: Harrow Health
  Company Number: AR-Novartis Pharma-NVSC2025AR177498

PATIENT
  Age: 93 Year
  Sex: Female

DRUGS (3)
  1. NEVANAC [Suspect]
     Active Substance: NEPAFENAC
     Indication: Eye oedema
     Dosage: 0.1 %, Q8H
     Route: 047
     Dates: start: 20251112
  2. TRAVATAN [Concomitant]
     Active Substance: TRAVOPROST
  3. Glaucotensil [Concomitant]

REACTIONS (4)
  - Diabetes mellitus [Unknown]
  - Blood glucose increased [Recovered/Resolved]
  - Chills [Unknown]
  - Vomiting [Recovered/Resolved]

NARRATIVE: CASE EVENT DATE: 20251112
